FAERS Safety Report 17359368 (Version 2)
Quarter: 2020Q2

REPORT INFORMATION
  Report Type: Spontaneous
  Country: JP (occurrence: JP)
  Receive Date: 20200203
  Receipt Date: 20200412
  Transmission Date: 20200713
  Serious: Yes (Life-Threatening, Hospitalization, Other)
  Sender: FDA-Public Use
  Company Number: JP-BRISTOL-MYERS SQUIBB COMPANY-BMS-2020-007611

PATIENT
  Age: 48 Year
  Sex: Female

DRUGS (3)
  1. ELIQUIS [Suspect]
     Active Substance: APIXABAN
     Indication: DEEP VEIN THROMBOSIS
     Dosage: 10 MILLIGRAM, DAILY
     Route: 048
     Dates: start: 20190902, end: 20190927
  2. ELIQUIS [Suspect]
     Active Substance: APIXABAN
     Indication: PRODUCT USED FOR UNKNOWN INDICATION
     Dosage: 10 MILLIGRAM, DAILY
     Route: 048
     Dates: start: 20190930, end: 20200102
  3. ELIQUIS [Suspect]
     Active Substance: APIXABAN
     Indication: PULMONARY EMBOLISM
     Dosage: 10 MILLIGRAM, BID
     Route: 048
     Dates: start: 20190826, end: 20190901

REACTIONS (8)
  - Haemorrhagic ascites [Unknown]
  - Cerebral infarction [Not Recovered/Not Resolved]
  - Menorrhagia [Unknown]
  - Carotid artery occlusion [Not Recovered/Not Resolved]
  - Renal infarct [Not Recovered/Not Resolved]
  - Device occlusion [Unknown]
  - Paralysis [Unknown]
  - Dizziness [Unknown]

NARRATIVE: CASE EVENT DATE: 20190925
